FAERS Safety Report 14174324 (Version 10)
Quarter: 2018Q1

REPORT INFORMATION
  Report Type: Spontaneous
  Country: GB (occurrence: GB)
  Receive Date: 20171109
  Receipt Date: 20180326
  Transmission Date: 20180508
  Serious: Yes (Life-Threatening, Hospitalization, Other)
  Sender: FDA-Public Use
  Company Number: GB-009507513-1711GBR002959

PATIENT
  Age: 40 Year
  Sex: Female

DRUGS (5)
  1. ATRIPLA [Interacting]
     Active Substance: EFAVIRENZ\EMTRICITABINE\TENOFOVIR DISOPROXIL FUMARATE
     Dosage: UNK
     Route: 048
  2. NEXPLANON [Interacting]
     Active Substance: ETONOGESTREL
     Dosage: 1 IMPLANT, ^EVERY 3 MONTH^
     Route: 059
     Dates: start: 20130901, end: 20160107
  3. ATRIPLA [Interacting]
     Active Substance: EFAVIRENZ\EMTRICITABINE\TENOFOVIR DISOPROXIL FUMARATE
     Indication: HIV INFECTION
     Dosage: UNK, QD
     Route: 048
  4. VITAMINS (UNSPECIFIED) [Concomitant]
     Active Substance: VITAMINS
     Dosage: UNK
  5. NEXPLANON [Suspect]
     Active Substance: ETONOGESTREL
     Indication: CONTRACEPTION
     Dosage: 1 DF, EVERY 3 YEARS
     Route: 059
     Dates: start: 20130901, end: 20160701

REACTIONS (8)
  - Drug prescribing error [Unknown]
  - Internal haemorrhage [Unknown]
  - Labelled drug-drug interaction medication error [Unknown]
  - Maternal exposure during pregnancy [Recovered/Resolved]
  - Immunodeficiency [Unknown]
  - Pregnancy with implant contraceptive [Recovered/Resolved]
  - Unintended pregnancy [Recovered/Resolved]
  - Ectopic pregnancy with contraceptive device [Recovered/Resolved]

NARRATIVE: CASE EVENT DATE: 2015
